FAERS Safety Report 17439234 (Version 1)
Quarter: 2020Q1

REPORT INFORMATION
  Report Type: Spontaneous
  Country: US (occurrence: US)
  Receive Date: 20200219
  Receipt Date: 20200219
  Transmission Date: 20200409
  Serious: Yes (Other)
  Sender: FDA-Public Use
  Company Number: None

PATIENT
  Age: 17 Year
  Sex: Female

DRUGS (6)
  1. LYNPARZA [Suspect]
     Active Substance: OLAPARIB
     Route: 048
     Dates: start: 20190821
  2. ZOFRAN [Concomitant]
     Active Substance: ONDANSETRON HYDROCHLORIDE
  3. CBD HEMP OIL [Concomitant]
     Active Substance: CANNABIDIOL\CANNABIS SATIVA SEED OIL
  4. CYPROHEPTADINE. [Concomitant]
     Active Substance: CYPROHEPTADINE
  5. PREVACID SOLUTAB [Concomitant]
     Active Substance: LANSOPRAZOLE
  6. THC - [Concomitant]

REACTIONS (3)
  - Erythema [None]
  - Skin warm [None]
  - Peripheral swelling [None]

NARRATIVE: CASE EVENT DATE: 20200216
